FAERS Safety Report 21835081 (Version 1)
Quarter: 2023Q1

REPORT INFORMATION
  Report Type: Report from Study
  Country: US (occurrence: US)
  Receive Date: 20230109
  Receipt Date: 20230109
  Transmission Date: 20230418
  Serious: No
  Sender: FDA-Public Use
  Company Number: US-ABBVIE-4261171

PATIENT
  Sex: Male

DRUGS (11)
  1. IMBRUVICA [Suspect]
     Active Substance: IBRUTINIB
     Indication: Chronic lymphocytic leukaemia
     Route: 048
     Dates: start: 202210
  2. VITAMIN D3 [Concomitant]
     Active Substance: CHOLECALCIFEROL
     Indication: Product used for unknown indication
     Dosage: 25 MCG (100
     Route: 048
  3. Temazepam 15 MG [Concomitant]
     Indication: Product used for unknown indication
     Route: 048
  4. 100 mg Lamotrigine [Concomitant]
     Indication: Product used for unknown indication
     Route: 048
  5. ESCITALOPRAM OXALATE [Concomitant]
     Active Substance: ESCITALOPRAM OXALATE
     Indication: Product used for unknown indication
     Dosage: 20
     Route: 048
  6. Hycodan 5-1.5 MG/5ML [Concomitant]
     Indication: Product used for unknown indication
     Route: 048
  7. Bupropion HCL  100 MG [Concomitant]
     Indication: Product used for unknown indication
     Route: 048
  8. Melatonin 3 MG [Concomitant]
     Indication: Product used for unknown indication
     Route: 048
  9. TYLENOL EXTRA STRENGTH [Concomitant]
     Active Substance: ACETAMINOPHEN
     Indication: Product used for unknown indication
     Route: 048
  10. 5 mg Xyzal allergy 24hr [Concomitant]
     Indication: Product used for unknown indication
     Route: 048
  11. MONTELUKAST SODIUM [Concomitant]
     Active Substance: MONTELUKAST SODIUM
     Indication: Product used for unknown indication
     Dosage: 10 M
     Route: 048

REACTIONS (3)
  - Nervousness [Not Recovered/Not Resolved]
  - Balance disorder [Not Recovered/Not Resolved]
  - Insomnia [Not Recovered/Not Resolved]
